FAERS Safety Report 4596600-9 (Version None)
Quarter: 2005Q1

REPORT INFORMATION
  Report Type: 
  Country: None (occurrence: None)
  Receive Date: 20050228
  Receipt Date: 20050216
  Transmission Date: 20050727
  Serious: Yes (Other)
  Sender: FDA-Public Use
  Company Number: 2005032487

PATIENT
  Sex: Female
  Weight: 81.6475 kg

DRUGS (10)
  1. ROGAINE [Suspect]
     Indication: HYPOTRICHOSIS
     Dosage: 1 ML, 2 TIMES DAILY, TOPICAL
     Route: 061
     Dates: start: 19920101, end: 20041101
  2. QUINAPRIL HCL [Concomitant]
  3. DIFLUNISAL [Concomitant]
  4. LEVOTHYTOXINE SODIUM (LEVOTHYROXINE SODIUM) [Concomitant]
  5. SERETIDE MITE (FLUTICASONE PROPIONATE, SALMETEROL XINAFOATE) [Concomitant]
  6. PAROXETINE HCL [Concomitant]
  7. OMEPRAZOLE [Concomitant]
  8. ASPIRIN [Concomitant]
  9. ESTROGEN NOS (ESTROGEN NOS) [Concomitant]
  10. MONTELUKAST [Concomitant]

REACTIONS (2)
  - ALOPECIA [None]
  - THYROID GLAND CANCER [None]
